FAERS Safety Report 12197610 (Version 1)
Quarter: 2016Q1

REPORT INFORMATION
  Report Type: Spontaneous
  Country: US (occurrence: US)
  Receive Date: 20160322
  Receipt Date: 20160322
  Transmission Date: 20160526
  Serious: Yes (Other)
  Sender: FDA-Public Use
  Company Number: US-HOSPIRA-3212232

PATIENT
  Age: 19 Year
  Sex: Female

DRUGS (1)
  1. MORPHINE SULPHATE [Suspect]
     Active Substance: MORPHINE SULFATE
     Indication: SUICIDE ATTEMPT
     Route: 042

REACTIONS (3)
  - Suicide attempt [Recovered/Resolved]
  - Pancreatitis [Recovered/Resolved]
  - Toxicity to various agents [Recovered/Resolved]
